FAERS Safety Report 4511802-5 (Version None)
Quarter: 2004Q4

REPORT INFORMATION
  Report Type: 
  Country: None (occurrence: None)
  Receive Date: 20041123
  Receipt Date: 20041123
  Transmission Date: 20050328
  Serious: Yes (Other)
  Sender: FDA-Public Use
  Company Number: None

PATIENT
  Age: 51 Year
  Sex: Male
  Weight: 89.4 kg

DRUGS (6)
  1. HALOPERIDOL [Suspect]
  2. MULTIVITAMIN/MINERALS THERAPEUT [Concomitant]
  3. NAPROXEN [Concomitant]
  4. RISPERIDONE [Concomitant]
  5. SIMVASTATIN [Concomitant]
  6. THIOTHIXENE HCL [Concomitant]

REACTIONS (1)
  - TINNITUS [None]
